FAERS Safety Report 18869009 (Version 1)
Quarter: 2021Q1

REPORT INFORMATION
  Report Type: Spontaneous
  Country: US (occurrence: US)
  Receive Date: 20210210
  Receipt Date: 20210210
  Transmission Date: 20210420
  Serious: No
  Sender: FDA-Public Use
  Company Number: US-SA-2021SA042571

PATIENT
  Age: 70 Year
  Sex: Female

DRUGS (2)
  1. DUPIXENT [Suspect]
     Active Substance: DUPILUMAB
     Indication: CHRONIC SINUSITIS
     Dosage: DRUG STRUCTURE DOSAGE : 300 MG DRUG INTERVAL DOSAGE : EVER 2 WEEKS DRUG TREATMENT DURATION: NA
     Route: 058
     Dates: end: 20201231
  2. DUPIXENT [Suspect]
     Active Substance: DUPILUMAB
     Indication: BRONCHITIS CHRONIC

REACTIONS (1)
  - Product use in unapproved indication [Unknown]
